FAERS Safety Report 5963660-X (Version None)
Quarter: 2008Q4

REPORT INFORMATION
  Report Type: 
  Country: None (occurrence: None)
  Receive Date: 20081124
  Receipt Date: 20081118
  Transmission Date: 20090506
  Serious: Yes (Hospitalization)
  Sender: FDA-Public Use
  Company Number: US-ELI_LILLY_AND_COMPANY-US200811004287

PATIENT
  Sex: Female

DRUGS (9)
  1. BYETTA [Suspect]
     Indication: TYPE 2 DIABETES MELLITUS
     Dosage: 5 UG, 2/D
     Route: 058
     Dates: start: 20070501, end: 20080501
  2. BYETTA [Suspect]
     Dosage: 10 UG, 2/D
     Route: 058
     Dates: start: 20080501, end: 20080501
  3. BYETTA [Suspect]
     Dosage: 5 UG, 2/D
     Route: 058
     Dates: start: 20080501, end: 20080801
  4. BYETTA [Suspect]
     Dosage: 5 UG, 2/D
     Route: 058
     Dates: start: 20081031, end: 20081114
  5. BYETTA [Suspect]
     Dosage: 10 UG, 2/D
     Route: 058
     Dates: start: 20081115
  6. LANTUS [Concomitant]
     Indication: TYPE 2 DIABETES MELLITUS
     Dosage: UNK, UNKNOWN
     Route: 058
     Dates: start: 20080101, end: 20081031
  7. INSULIN [Concomitant]
     Indication: TYPE 2 DIABETES MELLITUS
     Dosage: UNK, UNKNOWN
     Route: 058
     Dates: start: 20080801, end: 20080101
  8. GLUCOTROL [Concomitant]
     Indication: TYPE 2 DIABETES MELLITUS
     Dosage: UNK, UNKNOWN
     Route: 048
     Dates: end: 20080101
  9. METFORMIN HCL [Concomitant]
     Dosage: UNK, UNKNOWN
     Route: 048
     Dates: end: 20080101

REACTIONS (9)
  - BLOOD CREATININE INCREASED [None]
  - BLOOD GLUCOSE DECREASED [None]
  - CORONARY ARTERY BYPASS [None]
  - DECREASED APPETITE [None]
  - GLYCOSYLATED HAEMOGLOBIN INCREASED [None]
  - HYPERHIDROSIS [None]
  - MEMORY IMPAIRMENT [None]
  - NAUSEA [None]
  - TREMOR [None]
